FAERS Safety Report 13926784 (Version 1)
Quarter: 2017Q3

REPORT INFORMATION
  Report Type: Spontaneous
  Country: FR (occurrence: FR)
  Receive Date: 20170831
  Receipt Date: 20170831
  Transmission Date: 20171127
  Serious: Yes (Hospitalization)
  Sender: FDA-Public Use
  Company Number: FR-SA-2017SA154937

PATIENT
  Age: 14 Month
  Sex: Male
  Weight: 9 kg

DRUGS (2)
  1. LOVENOX [Suspect]
     Active Substance: ENOXAPARIN SODIUM
     Indication: CEREBROVASCULAR ACCIDENT
     Dosage: 4000 IU ANTI-XA/0.4 ML, INJECTABLE SOLUTION IN PRE FILLED SYRINGE
     Route: 058
     Dates: start: 20170805
  2. LOVENOX [Suspect]
     Active Substance: ENOXAPARIN SODIUM
     Indication: CEREBROVASCULAR ACCIDENT
     Route: 058
     Dates: start: 20170807

REACTIONS (3)
  - Incorrect dose administered [Unknown]
  - Activated partial thromboplastin time prolonged [Recovered/Resolved]
  - Medication error [Unknown]

NARRATIVE: CASE EVENT DATE: 20170805
